FAERS Safety Report 15327560 (Version 2)
Quarter: 2018Q3

REPORT INFORMATION
  Report Type: Report from Study
  Country: AU (occurrence: AU)
  Receive Date: 20180828
  Receipt Date: 20180903
  Transmission Date: 20181010
  Serious: Yes (Death, Other)
  Sender: FDA-Public Use
  Company Number: AU-PFIZER INC-2018346706

PATIENT
  Age: 26 Year
  Sex: Female

DRUGS (8)
  1. DIAZEPAM. [Interacting]
     Active Substance: DIAZEPAM
     Dosage: UNK
  2. METHAMPHETAMINE [Interacting]
     Active Substance: METHAMPHETAMINE
     Dosage: UNK
  3. AMPHETAMINE [Interacting]
     Active Substance: AMPHETAMINE
     Dosage: UNK
  4. IBUPROFEN. [Suspect]
     Active Substance: IBUPROFEN
     Dosage: UNK
  5. FLUVOXAMINE [Interacting]
     Active Substance: FLUVOXAMINE
     Dosage: UNK
  6. OLANZAPINE. [Interacting]
     Active Substance: OLANZAPINE
     Dosage: UNK
  7. NORDAZEPAM [Interacting]
     Active Substance: NORDAZEPAM
     Dosage: UNK
  8. METHYLENEDIOXYMETHAMPHETAMINE [Interacting]
     Active Substance: MIDOMAFETAMINE
     Dosage: UNK

REACTIONS (2)
  - Drug interaction [Fatal]
  - Toxicity to various agents [Fatal]
